FAERS Safety Report 7896929-2 (Version None)
Quarter: 2011Q4

REPORT INFORMATION
  Report Type: 
  Country: None (occurrence: None)
  Receive Date: 20111107
  Receipt Date: 20111021
  Transmission Date: 20120403
  Serious: Yes (Hospitalization)
  Sender: FDA-Public Use
  Company Number: US-BAYER-2011-022283

PATIENT
  Age: 28 Year
  Sex: Female
  Weight: 86 kg

DRUGS (5)
  1. DROSPIRENONE AND ETHINYL ESTRADIOL [Suspect]
     Indication: ENDOMETRIOSIS
  2. HERBAL PREPARATION [Concomitant]
     Indication: LAXATIVE SUPPORTIVE CARE
  3. IBUPROFEN [Concomitant]
     Dosage: 800 MG, UNK
  4. DROSPIRENONE AND ETHINYL ESTRADIOL [Suspect]
     Indication: CONTRACEPTION
     Dosage: UNK
     Route: 048
     Dates: start: 20081001, end: 20090707
  5. CYMBALTA [Concomitant]
     Indication: DEPRESSION
     Dosage: 60 MG, UNK
     Dates: start: 20090101

REACTIONS (6)
  - CHEST PAIN [None]
  - INJURY [None]
  - PULMONARY EMBOLISM [None]
  - COUGH [None]
  - PAIN [None]
  - DYSPNOEA [None]
